FAERS Safety Report 8815124 (Version 1)
Quarter: 2012Q4

REPORT INFORMATION
  Report Type: Report from Study
  Country: JP (occurrence: JP)
  Receive Date: 20120928
  Receipt Date: 20120928
  Transmission Date: 20130627
  Serious: Yes (Hospitalization)
  Sender: FDA-Public Use
  Company Number: JP-VERTEX PHARMACEUTICAL INC.-AE-2012-009366

PATIENT
  Age: 38 Year
  Sex: Male

DRUGS (5)
  1. VX-950 [Suspect]
     Indication: HEPATITIS C
     Dosage: 2250 mg, qd
     Route: 048
     Dates: start: 20120619, end: 20120620
  2. PEGINTRON                          /01543001/ [Suspect]
     Indication: HEPATITIS C
     Dosage: 1.5 UNK, UNK
     Route: 058
     Dates: start: 20120619, end: 20120619
  3. REBETOL [Suspect]
     Indication: HEPATITIS C
     Dosage: 600 mg, qd
     Route: 048
     Dates: start: 20120619, end: 20120620
  4. TAKEPRON [Concomitant]
     Dosage: 15 mg, qd
     Route: 048
     Dates: start: 20120625
  5. FERROMIA /00023516/ [Concomitant]
     Dosage: 50 mg, qd
     Route: 048
     Dates: start: 20120625

REACTIONS (1)
  - Oesophageal varices haemorrhage [Recovered/Resolved]
